FAERS Safety Report 9152776 (Version 1)
Quarter: 2013Q1

REPORT INFORMATION
  Report Type: Spontaneous
  Country: US (occurrence: US)
  Receive Date: 20130308
  Receipt Date: 20130308
  Transmission Date: 20140127
  Serious: No
  Sender: FDA-Public Use
  Company Number: US-PFIZER INC-2013076896

PATIENT
  Sex: Female
  Weight: 63.49 kg

DRUGS (6)
  1. THERMACARE HEATWRAPS [Suspect]
     Indication: ARTHRALGIA
     Dosage: UNK, AS NEEDED
     Dates: start: 2012
  2. THERMACARE HEATWRAPS [Suspect]
     Indication: RHEUMATOID ARTHRITIS
  3. THERMACARE HEATWRAPS [Suspect]
     Indication: MUSCULOSKELETAL PAIN
     Dosage: UNK, AS NEEDED
     Dates: start: 2012
  4. CELEBREX [Suspect]
     Indication: ARTHRALGIA
     Dosage: 200 MG, 1X/DAY
     Dates: start: 2012
  5. CELEBREX [Suspect]
     Indication: RHEUMATOID ARTHRITIS
  6. SALONPAS PAIN RELIEVING PATCH -L [Suspect]
     Indication: MUSCULOSKELETAL PAIN
     Dosage: UNK

REACTIONS (2)
  - Device misuse [Unknown]
  - Drug ineffective [Unknown]
